FAERS Safety Report 19919198 (Version 1)
Quarter: 2021Q4

REPORT INFORMATION
  Report Type: Report from Study
  Country: CO (occurrence: CO)
  Receive Date: 20211005
  Receipt Date: 20211005
  Transmission Date: 20220303
  Serious: Yes (Other)
  Sender: FDA-Public Use
  Company Number: CO-UCBSA-2021045832

PATIENT
  Age: 26 Year
  Sex: Male

DRUGS (4)
  1. BRIVARACETAM [Suspect]
     Active Substance: BRIVARACETAM
     Indication: Epilepsy
     Dosage: 50 MILLIGRAM, 2X/DAY (BID)
     Route: 048
     Dates: start: 20210803
  2. URBADAN [Concomitant]
     Indication: Epilepsy
     Dosage: 10MG UNK
     Route: 048
  3. OXCARBAZEPINE [Concomitant]
     Active Substance: OXCARBAZEPINE
     Indication: Epilepsy
     Dosage: 300MG UNK
     Route: 048
  4. VALCOTE [VALPROATE SODIUM] [Concomitant]
     Indication: Epilepsy
     Dosage: 500MG UNK
     Route: 048

REACTIONS (3)
  - Seizure [Recovered/Resolved]
  - Fall [Recovered/Resolved]
  - Mouth injury [Unknown]

NARRATIVE: CASE EVENT DATE: 20210915
